FAERS Safety Report 7403470-X (Version None)
Quarter: 2011Q2

REPORT INFORMATION
  Report Type: 
  Country: None (occurrence: None)
  Receive Date: 20110408
  Receipt Date: 20110401
  Transmission Date: 20111010
  Serious: Yes (Hospitalization)
  Sender: FDA-Public Use
  Company Number: B0711137A

PATIENT
  Sex: Female
  Weight: 82.4 kg

DRUGS (4)
  1. MYOCET [Suspect]
     Indication: BREAST CANCER
     Dosage: 120MG EVERY 3 WEEKS
     Route: 042
     Dates: start: 20110325, end: 20110325
  2. CIPROBAY [Suspect]
     Dosage: 1000MG PER DAY
     Route: 042
     Dates: start: 20110401
  3. LAPATINIB [Suspect]
     Indication: BREAST CANCER
     Dosage: 1250MG PER DAY
     Route: 048
     Dates: start: 20110325
  4. TAXOL [Suspect]
     Indication: BREAST CANCER
     Dosage: 350MG EVERY 3 WEEKS
     Route: 042
     Dates: start: 20110325, end: 20110325

REACTIONS (2)
  - NEUTROPENIA [None]
  - LEUKOPENIA [None]
